FAERS Safety Report 23459991 (Version 1)
Quarter: 2024Q1

REPORT INFORMATION
  Report Type: Spontaneous
  Country: FR (occurrence: FR)
  Receive Date: 20240131
  Receipt Date: 20240131
  Transmission Date: 20240410
  Serious: Yes (Hospitalization)
  Sender: FDA-Public Use
  Company Number: None

PATIENT
  Age: 30 Year
  Sex: Female

DRUGS (3)
  1. CEFAZOLIN [Suspect]
     Active Substance: CEFAZOLIN
     Indication: Antibiotic prophylaxis
     Dosage: 1 DOSAGE FORM, SINGLE
     Route: 042
     Dates: start: 20221120, end: 20221120
  2. PANTOPRAZOLE [Suspect]
     Active Substance: PANTOPRAZOLE
     Indication: Gastritis prophylaxis
     Dosage: 1 DOSAGE FORM, SINGLE
     Route: 042
     Dates: start: 20221120, end: 20221120
  3. VISIPAQUE [Suspect]
     Active Substance: IODIXANOL
     Indication: Therapeutic embolisation
     Dosage: 1 DOSAGE FORM, SINGLE
     Route: 042
     Dates: start: 20221120, end: 20221120

REACTIONS (1)
  - Drug reaction with eosinophilia and systemic symptoms [Recovered/Resolved]

NARRATIVE: CASE EVENT DATE: 20221121
